FAERS Safety Report 7114034-X (Version None)
Quarter: 2010Q4

REPORT INFORMATION
  Report Type: 
  Country: None (occurrence: None)
  Receive Date: 20101119
  Receipt Date: 20101111
  Transmission Date: 20110411
  Serious: Yes (Hospitalization)
  Sender: FDA-Public Use
  Company Number: B0685101A

PATIENT
  Sex: Female

DRUGS (9)
  1. PAROXETINE HCL [Suspect]
     Indication: PRODUCT USED FOR UNKNOWN INDICATION
     Dosage: 10MG PER DAY
     Route: 048
     Dates: start: 20100105, end: 20100205
  2. AMIODARONE [Concomitant]
  3. ALLOPURINOL [Concomitant]
  4. DILATREND [Concomitant]
  5. ASPIRIN [Concomitant]
     Route: 048
  6. LASIX [Concomitant]
  7. PARIET [Concomitant]
  8. LANOXIN [Concomitant]
  9. ANAPRIL [Concomitant]

REACTIONS (2)
  - ERYTHEMA [None]
  - PAPULE [None]
